FAERS Safety Report 10655361 (Version 2)
Quarter: 2015Q1

REPORT INFORMATION
  Report Type: Spontaneous
  Country: KR (occurrence: KR)
  Receive Date: 20141216
  Receipt Date: 20150121
  Transmission Date: 20150720
  Serious: Yes (Other)
  Sender: FDA-Public Use
  Company Number: KR-OTSUKA-US-2014-14483

PATIENT

DRUGS (3)
  1. CYTARABINE. [Suspect]
     Active Substance: CYTARABINE
     Indication: ACUTE MYELOID LEUKAEMIA
     Dosage: 1 MG/M2, UNKNOWN
     Route: 065
     Dates: start: 20140925
  2. DACOGEN [Suspect]
     Active Substance: DECITABINE
     Dosage: 20 MG/M2, UNKNOWN
     Route: 042
     Dates: start: 20140717
  3. DACOGEN [Suspect]
     Active Substance: DECITABINE
     Indication: ACUTE MYELOID LEUKAEMIA
     Dosage: 20 MG/M2, UNKNOWN
     Route: 065
     Dates: start: 20140610

REACTIONS (3)
  - Pyrexia [Unknown]
  - Bone marrow failure [Unknown]
  - Leukaemia cutis [Unknown]

NARRATIVE: CASE EVENT DATE: 20140811
